FAERS Safety Report 6807921-0 (Version None)
Quarter: 2010Q2

REPORT INFORMATION
  Report Type: 
  Country: None (occurrence: None)
  Receive Date: 20100629
  Receipt Date: 20090225
  Transmission Date: 20101027
  Serious: No
  Sender: FDA-Public Use
  Company Number: US-PFIZER INC-2008155628

PATIENT
  Age: 72 Year
  Sex: Male
  Weight: 99.9 kg

DRUGS (7)
  1. ZYVOX [Suspect]
     Indication: STAPHYLOCOCCAL INFECTION
     Dosage: 600 MG, 2X/DAY
     Route: 042
     Dates: start: 20081206, end: 20081209
  2. CLINDAMYCIN [Concomitant]
     Dosage: UNK
  3. DOCUSATE [Concomitant]
     Dosage: UNK
  4. HYDROMORPHONE [Concomitant]
  5. INSULIN [Concomitant]
     Dosage: UNK
  6. PROTONIX [Concomitant]
     Dosage: UNK
     Route: 048
  7. RAMIPRIL [Concomitant]
     Dosage: UNK
     Route: 048

REACTIONS (2)
  - INFUSION SITE EXTRAVASATION [None]
  - INFUSION SITE PAIN [None]
